FAERS Safety Report 22319408 (Version 2)
Quarter: 2023Q2

REPORT INFORMATION
  Report Type: Spontaneous
  Country: US (occurrence: US)
  Receive Date: 20230515
  Receipt Date: 20230519
  Transmission Date: 20230722
  Serious: Yes (Hospitalization)
  Sender: FDA-Public Use
  Company Number: US-PFIZER INC-202300190685

PATIENT
  Age: 86 Year
  Sex: Male
  Weight: 69.4 kg

DRUGS (2)
  1. VYNDAMAX [Suspect]
     Active Substance: TAFAMIDIS
     Indication: Cardiac disorder
     Dosage: 61 MG
  2. LASIX [Concomitant]
     Active Substance: FUROSEMIDE
     Indication: Fluid retention
     Dosage: UNK

REACTIONS (4)
  - Urinary tract infection [Unknown]
  - Cyst [Unknown]
  - Infected cyst [Unknown]
  - Therapeutic response unexpected [Unknown]
